FAERS Safety Report 9297612 (Version 2)
Quarter: 2013Q2

REPORT INFORMATION
  Report Type: Spontaneous
  Country: US (occurrence: US)
  Receive Date: 20130520
  Receipt Date: 20130523
  Transmission Date: 20140414
  Serious: Yes (Other)
  Sender: FDA-Public Use
  Company Number: US-PFIZER INC-2013150554

PATIENT
  Age: 64 Year
  Sex: Female

DRUGS (1)
  1. SUTENT [Suspect]
     Dosage: 37.5 MG (25 MG AND 12.5 MG) DAILY, 4 WEEKS ON AND 2 WEEKS OFF
     Dates: start: 20130513

REACTIONS (4)
  - Hypertension [Recovered/Resolved]
  - Heart rate decreased [Recovered/Resolved]
  - Circumstance or information capable of leading to medication error [Unknown]
  - Pruritus [Recovered/Resolved]
